FAERS Safety Report 18642832 (Version 1)
Quarter: 2020Q4

REPORT INFORMATION
  Report Type: Spontaneous
  Country: FR (occurrence: FR)
  Receive Date: 20201221
  Receipt Date: 20201221
  Transmission Date: 20210114
  Serious: Yes (Other)
  Sender: FDA-Public Use
  Company Number: FR-MYLANLABS-2020M1102860

PATIENT
  Age: 60 Year
  Sex: Female

DRUGS (4)
  1. ROXITHROMYCIN [Suspect]
     Active Substance: ROXITHROMYCIN
     Indication: PNEUMONIA LEGIONELLA
     Dosage: 150 MILLIGRAM, QD
     Route: 065
  2. AZITHROMYCIN ANHYDROUS. [Suspect]
     Active Substance: AZITHROMYCIN ANHYDROUS
     Indication: PNEUMONIA LEGIONELLA
     Dosage: 500 MILLIGRAM, QD
     Route: 065
  3. OFLOXACIN. [Suspect]
     Active Substance: OFLOXACIN
     Indication: PNEUMONIA LEGIONELLA
     Dosage: 200 MILLIGRAM, QD
     Route: 065
  4. OFLOXACIN. [Suspect]
     Active Substance: OFLOXACIN
     Dosage: 200 MILLIGRAM, QD
     Route: 065

REACTIONS (3)
  - Pneumonia legionella [Not Recovered/Not Resolved]
  - Overdose [Not Recovered/Not Resolved]
  - Off label use [Not Recovered/Not Resolved]
